FAERS Safety Report 9842970 (Version 1)
Quarter: 2014Q1

REPORT INFORMATION
  Report Type: Spontaneous
  Country: US (occurrence: US)
  Receive Date: 20140124
  Receipt Date: 20140124
  Transmission Date: 20141002
  Serious: No
  Sender: FDA-Public Use
  Company Number: US-PFIZER INC-2014021580

PATIENT
  Age: 50 Year
  Sex: Male
  Weight: 74.83 kg

DRUGS (3)
  1. LYRICA [Suspect]
     Indication: NEURALGIA
     Dosage: 75 MG, 2X/DAY
     Route: 048
     Dates: start: 201401, end: 201401
  2. OXYCONTIN [Concomitant]
     Indication: BACK PAIN
     Dosage: UNK
  3. OXYCODONE [Concomitant]
     Indication: BACK PAIN
     Dosage: UNK

REACTIONS (6)
  - Insomnia [Unknown]
  - Pain in jaw [Unknown]
  - Headache [Unknown]
  - Neck pain [Unknown]
  - Chest pain [Unknown]
  - Facial pain [Unknown]
